FAERS Safety Report 19839234 (Version 1)
Quarter: 2021Q3

REPORT INFORMATION
  Report Type: Spontaneous
  Country: JP (occurrence: JP)
  Receive Date: 20210916
  Receipt Date: 20210916
  Transmission Date: 20211014
  Serious: Yes (Hospitalization, Other)
  Sender: FDA-Public Use
  Company Number: JP-VISTAPHARM, INC.-VER202109-001920

PATIENT
  Sex: Male

DRUGS (3)
  1. SODIUM VALPROATE [Suspect]
     Active Substance: VALPROATE SODIUM
     Route: 064
  2. OXYTOCIN. [Concomitant]
     Active Substance: OXYTOCIN
     Route: 064
  3. PHENYTOIN. [Suspect]
     Active Substance: PHENYTOIN
     Route: 064

REACTIONS (2)
  - Foetal heart rate disorder [Recovered/Resolved]
  - Foetal exposure during pregnancy [Unknown]
